FAERS Safety Report 10006596 (Version 1)
Quarter: 2014Q1

REPORT INFORMATION
  Report Type: Spontaneous
  Country: DE (occurrence: DE)
  Receive Date: 20140313
  Receipt Date: 20140313
  Transmission Date: 20141002
  Serious: Yes (Congenital Anomaly, Other)
  Sender: FDA-Public Use
  Company Number: DE-TEVA-466834GER

PATIENT
  Age: 1 Day
  Sex: Male

DRUGS (2)
  1. VENLAFAXINE [Suspect]
     Route: 064
  2. FOLIO FORTE [Concomitant]
     Route: 064

REACTIONS (5)
  - Neonatal respiratory distress syndrome [Recovered/Resolved]
  - Patent ductus arteriosus [Recovered/Resolved]
  - Atrial septal defect [Not Recovered/Not Resolved]
  - Feeding disorder neonatal [Recovered/Resolved]
  - Agitation neonatal [Recovered/Resolved]
